FAERS Safety Report 19778853 (Version 1)
Quarter: 2021Q3

REPORT INFORMATION
  Report Type: Spontaneous
  Country: US (occurrence: US)
  Receive Date: 20210831
  Receipt Date: 20210831
  Transmission Date: 20211014
  Serious: Yes (Death)
  Sender: FDA-Public Use
  Company Number: None

PATIENT
  Age: 65 Year
  Sex: Male

DRUGS (28)
  1. ACETAZOLAMID [Concomitant]
     Active Substance: ACETAZOLAMIDE
  2. ATORVASTATIN [Concomitant]
     Active Substance: ATORVASTATIN
  3. MORPHINE SUL [Concomitant]
     Active Substance: MORPHINE SULFATE
  4. SOD CHLORIDE [Concomitant]
     Active Substance: SODIUM CHLORIDE
  5. TRAMADOL HCL [Concomitant]
     Active Substance: TRAMADOL HYDROCHLORIDE
  6. AMITRIPTYLIN [Concomitant]
     Active Substance: AMITRIPTYLINE
  7. AMOX/K CLAV [Concomitant]
     Active Substance: AMOXICILLIN\CLAVULANATE POTASSIUM
  8. BUT/APAP/CAF [Concomitant]
  9. CEPHALEXIN. [Concomitant]
     Active Substance: CEPHALEXIN
  10. LACTULOSE. [Concomitant]
     Active Substance: LACTULOSE
  11. OLANAPINE [Concomitant]
  12. ONDANSETRON [Concomitant]
     Active Substance: ONDANSETRON
  13. PHENYTOIN EX [Concomitant]
  14. SMZ/TMP DS [Concomitant]
     Active Substance: SULFAMETHOXAZOLE\TRIMETHOPRIM
  15. ELIQUIS [Concomitant]
     Active Substance: APIXABAN
  16. BUPROPN HCL XL [Concomitant]
  17. LEVETIRACETA [Concomitant]
     Active Substance: LEVETIRACETAM
  18. PHENYTOIN CHW [Concomitant]
  19. VALPORIC ACID [Concomitant]
     Active Substance: VALPROIC ACID
  20. TEMOZOLOMIDE CAP 100MG CAP [Suspect]
     Active Substance: TEMOZOLOMIDE
     Indication: BRAIN NEOPLASM MALIGNANT
     Dosage: ?          OTHER FREQUENCY:QDX5D;OTHER ROUTE:PO?42DAY CYCLE?
     Dates: start: 20210410, end: 20210826
  21. CITALOPRAM [Concomitant]
     Active Substance: CITALOPRAM HYDROBROMIDE
  22. PANTOPRAZOLE [Concomitant]
     Active Substance: PANTOPRAZOLE
  23. DEXAMETHASON [Concomitant]
     Active Substance: DEXAMETHASONE
  24. ESCITALOPRAM [Concomitant]
     Active Substance: ESCITALOPRAM OXALATE
  25. ALBUTERP; HFA [Concomitant]
  26. ALPRAZPLAM [Concomitant]
  27. HYDROCO/APAP [Concomitant]
     Active Substance: ACETAMINOPHEN\HYDROCODONE
  28. LORAZEPAM. [Concomitant]
     Active Substance: LORAZEPAM

REACTIONS (1)
  - Death [None]

NARRATIVE: CASE EVENT DATE: 20210826
